FAERS Safety Report 23109144 (Version 1)
Quarter: 2023Q4

REPORT INFORMATION
  Report Type: Report from Study
  Country: US (occurrence: US)
  Receive Date: 20231026
  Receipt Date: 20231026
  Transmission Date: 20240109
  Serious: Yes (Death, Life-Threatening, Other)
  Sender: FDA-Public Use
  Company Number: US-BAYER-2023A150305

PATIENT
  Age: 46 Year
  Sex: Female

DRUGS (3)
  1. ASPIRIN [Suspect]
     Active Substance: ASPIRIN
  2. ACETAMINOPHEN [Suspect]
     Active Substance: ACETAMINOPHEN
  3. PHENTERMINE [Suspect]
     Active Substance: PHENTERMINE

REACTIONS (9)
  - Toxicity to various agents [Fatal]
  - Depressed level of consciousness [None]
  - Hypoglycaemia [None]
  - Metabolic acidosis [None]
  - Electrocardiogram QT prolonged [None]
  - Rhabdomyolysis [None]
  - Respiratory depression [None]
  - Adrenergic syndrome [None]
  - Tachycardia [None]
